FAERS Safety Report 7858339 (Version 2)
Quarter: 2012Q4

REPORT INFORMATION
  Report Type: Report from Study
  Country: US (occurrence: US)
  Receive Date: 20110316
  Receipt Date: 20121214
  Transmission Date: 20130627
  Serious: Yes (Life-Threatening, Hospitalization)
  Sender: FDA-Public Use
  Company Number: US-GENZYME-CAMP-1000299

PATIENT
  Age: 0 Year
  Sex: Male
  Weight: 2.8 kg

DRUGS (1)
  1. ALEMTUZUMAB [Suspect]
     Indication: MULTIPLE SCLEROSIS
     Dosage: 12 mg, qdx5
     Route: 050
     Dates: start: 20080512, end: 20080516

REACTIONS (1)
  - Thyrotoxic crisis [Recovered/Resolved]
